FAERS Safety Report 5579083-1 (Version None)
Quarter: 2008Q1

REPORT INFORMATION
  Report Type: 
  Country: None (occurrence: None)
  Receive Date: 20080102
  Receipt Date: 20071227
  Transmission Date: 20080703
  Serious: Yes (Life-Threatening)
  Sender: FDA-Public Use
  Company Number: JP-ASTRAZENECA-2007AP08154

PATIENT
  Sex: Female

DRUGS (5)
  1. CRESTOR [Suspect]
     Indication: HYPERLIPIDAEMIA
     Route: 048
     Dates: start: 20071101
  2. TAKEPRON [Suspect]
     Indication: PROPHYLAXIS AGAINST GASTROINTESTINAL ULCER
     Dosage: DOSE UNKNOWN
     Route: 048
  3. BAKTAR [Suspect]
     Indication: INFECTION PROPHYLAXIS
     Route: 048
  4. AMOBAN [Suspect]
     Indication: INSOMNIA
     Dosage: DOSE UNKNOWN
     Route: 048
  5. PREDONINE [Concomitant]
     Indication: IDIOPATHIC THROMBOCYTOPENIC PURPURA
     Dosage: FREQUENCY UNKNOWN
     Route: 048

REACTIONS (1)
  - NEUTROPENIA [None]
